FAERS Safety Report 18527197 (Version 2)
Quarter: 2021Q1

REPORT INFORMATION
  Report Type: Spontaneous
  Country: CH (occurrence: CH)
  Receive Date: 20201120
  Receipt Date: 20210122
  Transmission Date: 20210419
  Serious: Yes (Other)
  Sender: FDA-Public Use
  Company Number: CH-ASTRAZENECA-2020SF50889

PATIENT
  Age: 54 Year
  Sex: Male

DRUGS (11)
  1. MAGNESIUM [Concomitant]
     Active Substance: MAGNESIUM
     Dosage: 40 PCS 0 ? 0 ? 1 IF REQUIRED
  2. COLPERMIN [Concomitant]
     Active Substance: PEPPERMINT OIL
     Dosage: 100 PCS 2 ? 2, IF REQUIRED
  3. SPIRICORT [Concomitant]
     Active Substance: PREDNISOLONE
     Dosage: 100 PCS 1.5 ? 0 ? 0
  4. ALDACTONE [Concomitant]
     Active Substance: SPIRONOLACTONE
     Dosage: 50 PCS 1 ? 0
  5. CELLCEPT [Concomitant]
     Active Substance: MYCOPHENOLATE MOFETIL\MYCOPHENOLATE MOFETIL HYDROCHLORIDE
     Dosage: 150 PCS 1 ? 0 ? 1
  6. VI DE 3 [Concomitant]
     Dosage: 3 DROPS 4500 U/ML 10 ML 0 ? 0 ? 0 SUNDAYS
  7. BISOPROLOL [Concomitant]
     Active Substance: BISOPROLOL
     Dosage: 100 PCS 1 ? 0 ? 1
  8. FORXIGA [Suspect]
     Active Substance: DAPAGLIFLOZIN
     Indication: CARDIAC FAILURE
     Route: 048
     Dates: end: 20200922
  9. MARCOUMAR [Concomitant]
     Active Substance: PHENPROCOUMON
     Dosage: 100 PCS 0 0 ? X INR 2.0?3.0
  10. TORASEMID [Concomitant]
     Active Substance: TORSEMIDE
     Dosage: 100 PCS 0 ? 0 ? 0 IF REQUIRED
  11. BACTRIM [Concomitant]
     Active Substance: SULFAMETHOXAZOLE\TRIMETHOPRIM
     Dosage: 50 PCS 1 ? 0 ? 0 3 TIMES WEEKLY

REACTIONS (12)
  - Starvation [Unknown]
  - Pollakiuria [Unknown]
  - Fatigue [Unknown]
  - Vertigo [Unknown]
  - Hypotension [Unknown]
  - Diarrhoea [Recovering/Resolving]
  - Sleep disorder [Unknown]
  - Dehydration [Recovering/Resolving]
  - Hypoglycaemia [Not Recovered/Not Resolved]
  - Weight decreased [Not Recovered/Not Resolved]
  - Thirst [Unknown]
  - Dizziness [Recovering/Resolving]
